FAERS Safety Report 7218863-3 (Version None)
Quarter: 2011Q1

REPORT INFORMATION
  Report Type: 
  Country: None (occurrence: None)
  Receive Date: 20110110
  Receipt Date: 20101228
  Transmission Date: 20110831
  Serious: Yes (Hospitalization)
  Sender: FDA-Public Use
  Company Number: JP-AMGEN-QUU444339

PATIENT

DRUGS (8)
  1. ENBREL [Suspect]
     Dosage: 25 MG, 1.5 /WK
     Route: 058
     Dates: start: 20080402, end: 20100913
  2. LOXONIN [Concomitant]
     Indication: RHEUMATOID ARTHRITIS
     Dosage: 60 MG, 3X/DAY
     Route: 048
  3. ENBREL [Suspect]
     Dosage: 25 MG, 2X/WEEK
     Route: 058
     Dates: start: 20060518, end: 20080401
  4. ENBREL [Suspect]
     Dosage: 25 MG, 2 TIMES/WK
     Route: 058
     Dates: start: 20060518, end: 20080401
  5. SELBEX [Concomitant]
     Dosage: 50 MG, 3X/DAY
     Route: 048
  6. LOXONIN                            /00890701/ [Concomitant]
     Indication: RHEUMATOID ARTHRITIS
     Dosage: 60 MG, TID
  7. ENBREL [Suspect]
     Dosage: 25 MG, 1.5 TIMES WEEKLY
     Dates: start: 20080402, end: 20100913
  8. SELBEX [Concomitant]
     Indication: PROPHYLAXIS
     Dosage: 50 MG, TID

REACTIONS (3)
  - CONCOMITANT DISEASE AGGRAVATED [None]
  - RHEUMATOID LUNG [None]
  - PNEUMONIA [None]
